FAERS Safety Report 4360450-9 (Version None)
Quarter: 2004Q2

REPORT INFORMATION
  Report Type: 
  Country: None (occurrence: None)
  Receive Date: 20040514
  Receipt Date: 20040506
  Transmission Date: 20050107
  Serious: Yes (Other)
  Sender: FDA-Public Use
  Company Number: HQWYE767407MAY04

PATIENT
  Age: 54 Year
  Sex: Female
  Weight: 105.33 kg

DRUGS (7)
  1. EFFEXOR XR [Suspect]
     Indication: DEPRESSION
     Dosage: 37.5 MG 1X PER 1 DAY, ORAL
     Route: 048
     Dates: start: 20040504
  2. VELOSULIN [Suspect]
     Indication: DIABETES MELLITUS INSULIN-DEPENDENT
     Dosage: UNKNOWN DOSE, CONTINUOUS VIA INSULIN PUMP
  3. PLAQUINOL (HYDROXYCHLOROQUINE SULFATE) [Concomitant]
  4. LEUKERAN [Concomitant]
  5. NEURONTIN [Concomitant]
  6. ZIAC [Concomitant]
  7. PREDNISONE [Concomitant]

REACTIONS (2)
  - BLOOD GLUCOSE INCREASED [None]
  - PHARMACEUTICAL PRODUCT COMPLAINT [None]
